FAERS Safety Report 14392025 (Version 1)
Quarter: 2018Q1

REPORT INFORMATION
  Report Type: Spontaneous
  Country: US (occurrence: US)
  Receive Date: 20180116
  Receipt Date: 20180116
  Transmission Date: 20180509
  Serious: No
  Sender: FDA-Public Use
  Company Number: US-GLAXOSMITHKLINE-US2018000796

PATIENT
  Age: 9 Year
  Sex: Female

DRUGS (4)
  1. FLONASE [Suspect]
     Active Substance: FLUTICASONE PROPIONATE
     Indication: MULTIPLE ALLERGIES
     Dosage: 4 PUFF(S), QD
     Route: 045
     Dates: start: 2013
  2. CETIRIZINE HYDROCHLORIDE TABLET [Concomitant]
     Indication: MULTIPLE ALLERGIES
  3. MONTELUKAST CHEWABLE TABLETS [Concomitant]
     Active Substance: MONTELUKAST SODIUM
     Indication: MULTIPLE ALLERGIES
     Dosage: UNK MG, UNK
  4. FLONASE [Suspect]
     Active Substance: FLUTICASONE PROPIONATE
     Indication: MULTIPLE ALLERGIES
     Dosage: 4 PUFF(S), QD
     Route: 045
     Dates: end: 20180102

REACTIONS (4)
  - Dizziness [Unknown]
  - Prescribed overdose [Unknown]
  - Muscular weakness [Unknown]
  - Product use issue [Unknown]
